FAERS Safety Report 15585025 (Version 2)
Quarter: 2019Q3

REPORT INFORMATION
  Report Type: Report from Study
  Country: US (occurrence: US)
  Receive Date: 20181102
  Receipt Date: 20190710
  Transmission Date: 20191004
  Serious: Yes (Hospitalization, Other)
  Sender: FDA-Public Use
  Company Number: US-SHIRE-US201841644

PATIENT
  Age: 72 Year
  Sex: Male

DRUGS (1)
  1. GATTEX [Suspect]
     Active Substance: TEDUGLUTIDE\WATER
     Indication: SHORT-BOWEL SYNDROME
     Dosage: 2.63 MG, 1X/DAY:QD
     Route: 058
     Dates: start: 20171218

REACTIONS (2)
  - Pneumonia [Unknown]
  - Infection [Unknown]

NARRATIVE: CASE EVENT DATE: 201906
